FAERS Safety Report 6689530-X (Version None)
Quarter: 2010Q2

REPORT INFORMATION
  Report Type: 
  Country: None (occurrence: None)
  Receive Date: 20100421
  Receipt Date: 20100412
  Transmission Date: 20101027
  Serious: No
  Sender: FDA-Public Use
  Company Number: US-BIOGENIDEC-2010BI012665

PATIENT
  Age: 36 Year
  Sex: Female

DRUGS (4)
  1. TYSABRI [Suspect]
     Indication: MULTIPLE SCLEROSIS
     Route: 042
     Dates: start: 20050117
  2. TYSABRI [Suspect]
     Route: 042
     Dates: start: 20080922, end: 20090723
  3. TYSABRI [Suspect]
     Route: 042
     Dates: start: 20100108
  4. AVONEX [Concomitant]
     Indication: MULTIPLE SCLEROSIS
     Route: 030

REACTIONS (6)
  - COUGH [None]
  - FATIGUE [None]
  - LARYNGITIS [None]
  - ORAL PAIN [None]
  - OROPHARYNGEAL PAIN [None]
  - TOOTH FRACTURE [None]
